FAERS Safety Report 24022327 (Version 1)
Quarter: 2024Q2

REPORT INFORMATION
  Report Type: Spontaneous
  Country: ES (occurrence: ES)
  Receive Date: 20240627
  Receipt Date: 20240627
  Transmission Date: 20240715
  Serious: No
  Sender: FDA-Public Use
  Company Number: ES-ROCHE-3546932

PATIENT
  Age: 50 Year
  Sex: Female

DRUGS (5)
  1. ENTRECTINIB [Suspect]
     Active Substance: ENTRECTINIB
     Indication: Ganglioneuroma
     Route: 048
  2. ENTRECTINIB [Suspect]
     Active Substance: ENTRECTINIB
     Route: 048
  3. ENTRECTINIB [Suspect]
     Active Substance: ENTRECTINIB
     Route: 048
  4. BISOPROLOL [Concomitant]
     Active Substance: BISOPROLOL\BISOPROLOL FUMARATE
  5. DULOXETINE [Concomitant]
     Active Substance: DULOXETINE

REACTIONS (1)
  - Cardiotoxicity [Unknown]
